FAERS Safety Report 6100723-2 (Version None)
Quarter: 2009Q1

REPORT INFORMATION
  Report Type: 
  Country: None (occurrence: None)
  Receive Date: 20090303
  Receipt Date: 20090216
  Transmission Date: 20090719
  Serious: Yes (Other)
  Sender: FDA-Public Use
  Company Number: GB-B.I. PHARMACEUTICALS,INC./RIDGEFIELD-2009-UK-00132UK

PATIENT
  Sex: Female

DRUGS (2)
  1. VIRAMUNE [Suspect]
  2. ABACAVIR SULFATE/LAMIVUDINE [Suspect]

REACTIONS (1)
  - VIRAL LOAD INCREASED [None]
